FAERS Safety Report 6316246-1 (Version None)
Quarter: 2009Q3

REPORT INFORMATION
  Report Type: 
  Country: None (occurrence: None)
  Receive Date: 20090819
  Receipt Date: 20090819
  Transmission Date: 20100115
  Serious: Yes (Hospitalization)
  Sender: FDA-Public Use
  Company Number: None

PATIENT
  Sex: Female
  Weight: 33.8 kg

DRUGS (5)
  1. ONCASPAR [Suspect]
     Dosage: 2750 IU
  2. METHOTREXATE [Suspect]
     Dosage: 12 MG
  3. DEXAMETHASONE [Suspect]
     Dosage: 70 MG
  4. CYTARABINE [Suspect]
     Dosage: 70 MG
  5. VINCRISTINE SULFATE [Suspect]
     Dosage: 3.2 MG

REACTIONS (21)
  - BACK PAIN [None]
  - BACTERIAL INFECTION [None]
  - BLOOD AMYLASE INCREASED [None]
  - BLOOD CREATININE INCREASED [None]
  - BLOOD CULTURE POSITIVE [None]
  - BLOOD PRESSURE DECREASED [None]
  - BLOOD PRESSURE INCREASED [None]
  - BONE PAIN [None]
  - CARDIO-RESPIRATORY ARREST [None]
  - CATHETER SITE HAEMATOMA [None]
  - CHROMATURIA [None]
  - CONVULSION [None]
  - DISSEMINATED INTRAVASCULAR COAGULATION [None]
  - GENERAL PHYSICAL HEALTH DETERIORATION [None]
  - HEART RATE INCREASED [None]
  - HEPATIC ENZYME INCREASED [None]
  - LIPASE INCREASED [None]
  - NEUROLOGICAL EXAMINATION ABNORMAL [None]
  - PLATELET COUNT DECREASED [None]
  - PULMONARY HAEMORRHAGE [None]
  - RASH [None]
